FAERS Safety Report 5957045-X (Version None)
Quarter: 2008Q4

REPORT INFORMATION
  Report Type: 
  Country: None (occurrence: None)
  Receive Date: 20081118
  Receipt Date: 20081014
  Transmission Date: 20090506
  Serious: No
  Sender: FDA-Public Use
  Company Number: A0751798A

PATIENT
  Sex: Female

DRUGS (1)
  1. COREG CR [Suspect]
     Dosage: 20MG PER DAY
     Route: 048
     Dates: start: 20080401

REACTIONS (2)
  - ALOPECIA [None]
  - OEDEMA PERIPHERAL [None]
